FAERS Safety Report 16785953 (Version 1)
Quarter: 2019Q3

REPORT INFORMATION
  Report Type: Spontaneous
  Country: US (occurrence: US)
  Receive Date: 20190909
  Receipt Date: 20190909
  Transmission Date: 20191005
  Serious: Yes (Other)
  Sender: FDA-Public Use
  Company Number: US-009507513-1909USA001384

PATIENT
  Age: 62 Year
  Sex: Male

DRUGS (4)
  1. VANCOMYCIN [Suspect]
     Active Substance: VANCOMYCIN
     Indication: URINARY TRACT INFECTION
  2. VANCOMYCIN [Suspect]
     Active Substance: VANCOMYCIN
     Indication: OSTEOMYELITIS
  3. INVANZ [Suspect]
     Active Substance: ERTAPENEM SODIUM
     Indication: URINARY TRACT INFECTION
  4. INVANZ [Suspect]
     Active Substance: ERTAPENEM SODIUM
     Indication: OSTEOMYELITIS

REACTIONS (1)
  - Erythema multiforme [Recovered/Resolved]
